FAERS Safety Report 7581567-1 (Version None)
Quarter: 2011Q2

REPORT INFORMATION
  Report Type: 
  Country: None (occurrence: None)
  Receive Date: 20110629
  Receipt Date: 20110623
  Transmission Date: 20111010
  Serious: Yes (Death)
  Sender: FDA-Public Use
  Company Number: PHHY2011US49693

PATIENT
  Sex: Male

DRUGS (1)
  1. DIOVAN HCT [Suspect]
     Dosage: 1 DF (160 MG OF VALSARTAN/UNKNOWN MG OF HYDROCHLOROTHIAZIDE12.5) QD
     Dates: start: 20050101

REACTIONS (1)
  - PULMONARY EMBOLISM [None]
